FAERS Safety Report 18419743 (Version 1)
Quarter: 2020Q4

REPORT INFORMATION
  Report Type: Spontaneous
  Country: US (occurrence: US)
  Receive Date: 20201023
  Receipt Date: 20201023
  Transmission Date: 20210114
  Serious: No
  Sender: FDA-Public Use
  Company Number: None

PATIENT
  Age: 56 Year
  Sex: 0

DRUGS (7)
  1. NEO/POLY/DEX [Concomitant]
     Active Substance: DEXAMETHASONE\NEOMYCIN\POLYMYXIN B SULFATE
  2. OXYCODONE [Suspect]
     Active Substance: OXYCODONE
  3. PROGESTERONE. [Concomitant]
     Active Substance: PROGESTERONE
  4. PROLIA [Suspect]
     Active Substance: DENOSUMAB
     Indication: OSTEOPOROSIS
     Dates: start: 20191213, end: 202009
  5. ESTRADIOL. [Concomitant]
     Active Substance: ESTRADIOL
  6. CYCLOBENZAPR [Concomitant]
     Active Substance: CYCLOBENZAPRINE
  7. MOXIFLOXACIN. [Concomitant]
     Active Substance: MOXIFLOXACIN

REACTIONS (2)
  - Hip fracture [None]
  - Product dose omission issue [None]

NARRATIVE: CASE EVENT DATE: 20200918
